FAERS Safety Report 4385142-1 (Version None)
Quarter: 2004Q2

REPORT INFORMATION
  Report Type: 
  Country: None (occurrence: None)
  Receive Date: 20040624
  Receipt Date: 20040624
  Transmission Date: 20050107
  Serious: Yes (Life-Threatening, Hospitalization)
  Sender: FDA-Public Use
  Company Number: None

PATIENT
  Sex: Male

DRUGS (2)
  1. OXALIPLATIN [Suspect]
     Indication: HEPATIC NEOPLASM MALIGNANT
     Dosage: 90 MG/M2 VIA HEPATIC ARTECIAL INFUSION Q 21 D
     Dates: start: 20040504
  2. OXALIPLATIN [Suspect]
     Indication: HEPATIC NEOPLASM MALIGNANT
     Dosage: 90 MG/M2 VIA HEPATIC ARTECIAL INFUSION Q 21 D
     Dates: start: 20040524

REACTIONS (3)
  - ABDOMINAL DISTENSION [None]
  - GASTRIC ULCER PERFORATION [None]
  - INSOMNIA [None]
